FAERS Safety Report 21649339 (Version 1)
Quarter: 2022Q4

REPORT INFORMATION
  Report Type: Report from Study
  Country: IL (occurrence: IL)
  Receive Date: 20221128
  Receipt Date: 20221128
  Transmission Date: 20230113
  Serious: Yes (Other)
  Sender: FDA-Public Use
  Company Number: IL-SUN PHARMACEUTICAL INDUSTRIES LTD-2022R1-364909

PATIENT
  Age: 50 Year
  Sex: Female

DRUGS (6)
  1. CARBOPLATIN [Suspect]
     Active Substance: CARBOPLATIN
     Indication: Pleural mesothelioma
     Dosage: AUC-5ON DAY 1, EVERY 21 DAYS FOR FIVE CYCLES
     Route: 042
  2. CARBOPLATIN [Suspect]
     Active Substance: CARBOPLATIN
     Dosage: TWO CYCLES
     Route: 042
  3. PEMETREXED [Suspect]
     Active Substance: PEMETREXED
     Indication: Pleural mesothelioma
     Dosage: 500 MILLIGRAM/SQ. METERON DAY 1, EVERY 21 DAYS FOR FIVE CYCLES
     Route: 042
  4. PEMETREXED [Suspect]
     Active Substance: PEMETREXED
     Dosage: TWO CYCLES
     Route: 042
  5. BEVACIZUMAB [Suspect]
     Active Substance: BEVACIZUMAB
     Indication: Pleural mesothelioma
     Dosage: 15 MILLIGRAM/KILOGRAM ON DAY 1, EVERY 21 DAYS FOR FIVE CYCLES
     Route: 042
  6. BEVACIZUMAB [Suspect]
     Active Substance: BEVACIZUMAB
     Dosage: TWO CYCLES
     Route: 042

REACTIONS (2)
  - Disease progression [Unknown]
  - Cerebral thrombosis [Unknown]
